FAERS Safety Report 9739323 (Version 1)
Quarter: 2013Q4

REPORT INFORMATION
  Report Type: Spontaneous
  Country: US (occurrence: US)
  Receive Date: 20131209
  Receipt Date: 20131209
  Transmission Date: 20140711
  Serious: No
  Sender: FDA-Public Use
  Company Number: US-GLAXOSMITHKLINE-A1045744A

PATIENT
  Age: 25 Year
  Sex: Male

DRUGS (2)
  1. FABIOR [Suspect]
     Indication: ACNE
     Dosage: 1APP PER DAY
     Route: 061
  2. NEOBENZ [Concomitant]

REACTIONS (6)
  - Burns first degree [Unknown]
  - Burning sensation [Unknown]
  - Pruritus [Unknown]
  - Skin exfoliation [Unknown]
  - Erythema [Unknown]
  - Drug administration error [Unknown]
